FAERS Safety Report 5017976-4 (Version None)
Quarter: 2006Q2

REPORT INFORMATION
  Report Type: 
  Country: None (occurrence: None)
  Receive Date: 20060605
  Receipt Date: 20060526
  Transmission Date: 20061013
  Serious: Yes (Life-Threatening)
  Sender: FDA-Public Use
  Company Number: GB-GLAXOSMITHKLINE-B0425665A

PATIENT
  Sex: Male
  Weight: 44.5 kg

DRUGS (1)
  1. AMOXICILLIN [Suspect]
     Route: 048

REACTIONS (1)
  - ANGIONEUROTIC OEDEMA [None]
